FAERS Safety Report 12468608 (Version 1)
Quarter: 2016Q2

REPORT INFORMATION
  Report Type: Report from Study
  Country: US (occurrence: US)
  Receive Date: 20160615
  Receipt Date: 20160615
  Transmission Date: 20160815
  Serious: Yes (Hospitalization)
  Sender: FDA-Public Use
  Company Number: PHHO2016US008459

PATIENT
  Age: 73 Year
  Sex: Female
  Weight: 79.37 kg

DRUGS (4)
  1. MYCOPHENOLATE MOFETIL. [Suspect]
     Active Substance: MYCOPHENOLATE MOFETIL
     Indication: RENAL TRANSPLANT
     Dosage: 500 MG, BID
     Route: 048
     Dates: start: 20141126
  2. PREDNISONE. [Suspect]
     Active Substance: PREDNISONE
     Indication: RENAL TRANSPLANT
     Dosage: 2.5 MG, QD
     Route: 048
     Dates: start: 20141126
  3. TACROLIMUS. [Suspect]
     Active Substance: TACROLIMUS
     Indication: RENAL TRANSPLANT
     Dosage: 5 MG, BID
     Route: 048
     Dates: start: 20141126
  4. NO TREATMENT RECEIVED [Suspect]
     Active Substance: UNSPECIFIED INGREDIENT
     Indication: RENAL TRANSPLANT
     Dosage: NO TREATMENT
     Route: 065

REACTIONS (6)
  - Lung infiltration [Recovered/Resolved]
  - Encephalopathy [Recovered/Resolved]
  - Respiratory failure [Recovered/Resolved]
  - Hyperglycaemia [Recovered/Resolved]
  - Pyrexia [Recovered/Resolved]
  - Pneumonia [Recovered/Resolved]

NARRATIVE: CASE EVENT DATE: 20160525
